FAERS Safety Report 4265908-9 (Version None)
Quarter: 2004Q1

REPORT INFORMATION
  Report Type: 
  Country: None (occurrence: None)
  Receive Date: 20040106
  Receipt Date: 20031222
  Transmission Date: 20041129
  Serious: Yes (Hospitalization, Other)
  Sender: FDA-Public Use
  Company Number: 2003004840

PATIENT
  Age: 53 Year
  Sex: Male

DRUGS (23)
  1. DIFLUCAN TABLETS (FLUCONAZOLE) [Suspect]
     Indication: ILL-DEFINED DISORDER
     Dosage: 200 MG
  2. LEVOFLOXACIN [Suspect]
     Indication: PNEUMONIA
     Dosage: 250 MG (Q48 H), INTRAVENOUS
     Route: 042
  3. PIPERACILLIN/TAZOBACTAM (PIPERACILLIN, TAZOBACTAM) [Suspect]
     Indication: PNEUMONIA
     Dosage: 6.75 GRAM (Q8H), INTRAVENOUS
     Route: 042
  4. ACETYLSALICYLIC ACID SRT [Concomitant]
  5. METOPROLOL SUCCINATE [Concomitant]
  6. WARFARIN SODIUM [Concomitant]
  7. FLUVASTATIN (FLUVASTATIN) [Concomitant]
  8. ISOPHANE INSULIN (ISOPHANE INSULIN) [Concomitant]
  9. NEPHROCAPS (FOLIC ACID, VITAMINS NOS) [Concomitant]
  10. SEVELAMER (SEVELAMER) [Concomitant]
  11. DOCUSATE SODIUM (DOCUSATE SODIUM) [Concomitant]
  12. MULTIVITAMINS (ERGOCALCIFEROL/ASCORBIC ACID, FOLIC ACID, THIAMINE HYDR [Concomitant]
  13. SALBUTAMOL (SALBUTAMOL) [Concomitant]
  14. OXYGEN (OXYGEN) [Concomitant]
  15. LISINOPRIL [Concomitant]
  16. PANTOPRAZOLE (PANTOPRAZOLE) [Concomitant]
  17. SERTRALINE HCL [Concomitant]
  18. EPOETIN ALFA (EPOETIN ALFA) [Concomitant]
  19. CLOPIDOGREL BISULFATE [Concomitant]
  20. POTASSIUM CHLORIDE [Concomitant]
  21. AMLODIPINE [Concomitant]
  22. NOREPINEPHRINE (NOREPINEPHRINE) [Concomitant]
  23. RANITIDINE [Concomitant]

REACTIONS (10)
  - BLOOD CULTURE POSITIVE [None]
  - BODY TEMPERATURE INCREASED [None]
  - BRADYARRHYTHMIA [None]
  - DRUG INTERACTION [None]
  - ELECTROCARDIOGRAM QT CORRECTED INTERVAL PROLONGED [None]
  - ELECTROCARDIOGRAM QT PROLONGED [None]
  - SINUS BRADYCARDIA [None]
  - SYSTEMIC CANDIDA [None]
  - TORSADE DE POINTES [None]
  - VENTRICULAR EXTRASYSTOLES [None]
